FAERS Safety Report 7777228-6 (Version None)
Quarter: 2011Q3

REPORT INFORMATION
  Report Type: 
  Country: None (occurrence: None)
  Receive Date: 20110926
  Receipt Date: 20110914
  Transmission Date: 20111222
  Serious: Yes (Hospitalization)
  Sender: FDA-Public Use
  Company Number: PHEH2011US03788

PATIENT
  Sex: Female
  Weight: 67.574 kg

DRUGS (2)
  1. PROGRAF [Concomitant]
     Dosage: UNK UKN, UNK
  2. MYFORTIC [Suspect]
     Dosage: 720 MG, BID
     Route: 048
     Dates: start: 20110829, end: 20110830

REACTIONS (1)
  - CONVULSION [None]
